FAERS Safety Report 9959283 (Version 2)
Quarter: 2014Q1

REPORT INFORMATION
  Report Type: Spontaneous
  Country: US (occurrence: None)
  Receive Date: 20140227
  Receipt Date: 20140311
  Transmission Date: 20141002
  Serious: Yes (Other)
  Sender: FDA-Public Use
  Company Number: 2014SA022353

PATIENT
  Age: 32 Year
  Sex: Female
  Weight: 90.71 kg

DRUGS (1)
  1. ICY HOT [Suspect]
     Indication: MYALGIA
     Dates: start: 20140212, end: 20140212

REACTIONS (9)
  - Chemical injury [None]
  - Pain [None]
  - Urticaria [None]
  - Rash erythematous [None]
  - Application site pain [None]
  - Scar [None]
  - Blister [None]
  - Skin exfoliation [None]
  - Hyperaesthesia [None]
